FAERS Safety Report 25468318 (Version 1)
Quarter: 2025Q2

REPORT INFORMATION
  Report Type: Spontaneous
  Country: US (occurrence: US)
  Receive Date: 20250623
  Receipt Date: 20250623
  Transmission Date: 20250717
  Serious: Yes (Life-Threatening, Other)
  Sender: PFIZER
  Company Number: US-PFIZER INC-202500125845

PATIENT
  Age: 38 Year
  Sex: Male
  Weight: 76 kg

DRUGS (4)
  1. FENTANYL CITRATE [Suspect]
     Active Substance: FENTANYL CITRATE
  2. XYLAZINE [Suspect]
     Active Substance: XYLAZINE
  3. COCAINE [Suspect]
     Active Substance: COCAINE
  4. AMPHETAMINE [Suspect]
     Active Substance: AMPHETAMINE

REACTIONS (1)
  - Substance use disorder [Unknown]
